FAERS Safety Report 7954679-8 (Version None)
Quarter: 2011Q4

REPORT INFORMATION
  Report Type: 
  Country: None (occurrence: None)
  Receive Date: 20111202
  Receipt Date: 20111201
  Transmission Date: 20120403
  Serious: Yes (Hospitalization)
  Sender: FDA-Public Use
  Company Number: PHHO2011DE15582

PATIENT
  Sex: Female
  Weight: 66.2 kg

DRUGS (7)
  1. AFINITOR [Suspect]
     Dosage: CODE NOT BROKEN
     Route: 048
     Dates: start: 20110817, end: 20110911
  2. AFINITOR [Suspect]
     Dosage: CODE NOT BROKEN
     Route: 048
     Dates: start: 20110218, end: 20110307
  3. AFINITOR [Suspect]
     Indication: TUBEROUS SCLEROSIS
     Dosage: CODE NOT BROKEN
     Route: 048
     Dates: start: 20101111, end: 20101118
  4. AFINITOR [Suspect]
     Dosage: CODE NOT BROKEN
     Route: 048
     Dates: start: 20110308, end: 20110816
  5. AFINITOR [Suspect]
     Dosage: CODE NOT BROKEN
     Dates: start: 20101125, end: 20110217
  6. MAGNESIUM DIASPORAL [Concomitant]
     Indication: MUSCLE SPASMS
     Dosage: 200 MG, UNK
     Route: 048
     Dates: start: 20110502
  7. AFINITOR [Suspect]
     Dosage: CODE NOT BROKEN
     Route: 048
     Dates: start: 20101119, end: 20101124

REACTIONS (1)
  - SALIVARY GLAND CALCULUS [None]
